FAERS Safety Report 23506546 (Version 1)
Quarter: 2024Q1

REPORT INFORMATION
  Report Type: Spontaneous
  Country: US (occurrence: US)
  Receive Date: 20240209
  Receipt Date: 20240209
  Transmission Date: 20240410
  Serious: No
  Sender: FDA-Public Use
  Company Number: US-BRISTOL-MYERS SQUIBB COMPANY-2023-108797

PATIENT
  Age: 70 Year
  Sex: Female

DRUGS (2)
  1. ONUREG [Suspect]
     Active Substance: AZACITIDINE
     Indication: Product used for unknown indication
     Dosage: TAKE 1 TABLET BY MOUTH ONCE DAILY ON DAYS 1-14 OF 28 DAY CYCLE
     Route: 048
  2. ONUREG [Suspect]
     Active Substance: AZACITIDINE
     Dosage: DOSE AND ; FREQ : TAKE 1 TABLET BY MOUTH ONCE DAILY FOR 5 DAYS ON AND THEN 3 WEEKS OFF
     Route: 048

REACTIONS (1)
  - Off label use [Unknown]
